FAERS Safety Report 8974893 (Version 1)
Quarter: 2012Q4

REPORT INFORMATION
  Report Type: Spontaneous
  Country: US (occurrence: None)
  Receive Date: 20121218
  Receipt Date: 20121218
  Transmission Date: 20130627
  Serious: No
  Sender: FDA-Public Use
  Company Number: None

PATIENT
  Age: 15 Year
  Sex: Male
  Weight: 90.72 kg

DRUGS (1)
  1. AZITHROMYCIN [Suspect]
     Dosage: 250mg -2x first day- daily po
     Route: 048
     Dates: start: 20121210, end: 20121214

REACTIONS (6)
  - Drug ineffective [None]
  - Cough [None]
  - Headache [None]
  - Somnolence [None]
  - Myalgia [None]
  - No therapeutic response [None]
